FAERS Safety Report 14323974 (Version 1)
Quarter: 2017Q4

REPORT INFORMATION
  Report Type: Spontaneous
  Country: US (occurrence: US)
  Receive Date: 20171226
  Receipt Date: 20171226
  Transmission Date: 20180321
  Serious: Yes (Hospitalization, Other)
  Sender: FDA-Public Use
  Company Number: US-CORDEN PHARMA LATINA S.P.A.-US-2017COR000244

PATIENT

DRUGS (35)
  1. PREDNISONE. [Suspect]
     Active Substance: PREDNISONE
     Indication: DIFFUSE LARGE B-CELL LYMPHOMA STAGE IV
     Dosage: UNK  (CYCLE 1)
     Route: 065
  2. CYCLOPHOSPHAMIDE. [Suspect]
     Active Substance: CYCLOPHOSPHAMIDE
     Dosage: UNK, (CYCLE 3, 20 PERCENT REDUCED DOSE)
     Route: 065
  3. VINCRISTINE [Suspect]
     Active Substance: VINCRISTINE
     Dosage: UNK, (CYCLE 3, 20 PERCENT REDUCED DOSE)
     Route: 065
  4. VINCRISTINE [Suspect]
     Active Substance: VINCRISTINE
     Dosage: UNK  (CYCLE 4)
     Route: 065
  5. LEVOFLOXACIN. [Concomitant]
     Active Substance: LEVOFLOXACIN
     Indication: DIFFUSE LARGE B-CELL LYMPHOMA STAGE IV
  6. CYCLOPHOSPHAMIDE. [Suspect]
     Active Substance: CYCLOPHOSPHAMIDE
     Dosage: UNK  (CYCLE 5)
     Route: 065
  7. DOXORUBICIN [Suspect]
     Active Substance: DOXORUBICIN
     Dosage: UNK, (CYCLE 3, 20 PERCENT REDUCED DOSE)
     Route: 065
  8. CASPOFUNGIN [Concomitant]
     Active Substance: CASPOFUNGIN
     Indication: CANDIDA INFECTION
     Dosage: UNK
  9. AZITHROMYCIN ANHYDROUS. [Concomitant]
     Active Substance: AZITHROMYCIN ANHYDROUS
     Indication: DIFFUSE LARGE B-CELL LYMPHOMA STAGE IV
  10. CYCLOPHOSPHAMIDE. [Suspect]
     Active Substance: CYCLOPHOSPHAMIDE
     Dosage: UNK  (CYCLE 2)
     Route: 065
  11. DOXORUBICIN [Suspect]
     Active Substance: DOXORUBICIN
     Indication: DIFFUSE LARGE B-CELL LYMPHOMA STAGE IV
     Dosage: UNK  (CYCLE 1)
     Route: 065
  12. DOXORUBICIN [Suspect]
     Active Substance: DOXORUBICIN
     Dosage: UNK  (CYCLE 2)
     Route: 065
  13. PREDNISONE. [Suspect]
     Active Substance: PREDNISONE
     Dosage: UNK  (CYCLE 2)
     Route: 065
  14. PREDNISONE. [Suspect]
     Active Substance: PREDNISONE
     Dosage: UNK, (CYCLE 3, 20 PERCENT REDUCED DOSE)
     Route: 065
  15. PREDNISONE. [Suspect]
     Active Substance: PREDNISONE
     Dosage: UNK  (CYCLE 4)
     Route: 065
  16. RITUXIMAB. [Suspect]
     Active Substance: RITUXIMAB
     Dosage: UNK  (CYCLE 2)
     Route: 065
  17. OSELTAMIVIR [Concomitant]
     Active Substance: OSELTAMIVIR
     Indication: INFLUENZA
  18. ETOPOSIDE. [Suspect]
     Active Substance: ETOPOSIDE
     Indication: DIFFUSE LARGE B-CELL LYMPHOMA STAGE IV
     Dosage: UNK  (CYCLE 1)
     Route: 065
  19. ETOPOSIDE. [Suspect]
     Active Substance: ETOPOSIDE
     Dosage: UNK  (CYCLE 5)
     Route: 065
  20. CYCLOPHOSPHAMIDE. [Suspect]
     Active Substance: CYCLOPHOSPHAMIDE
     Indication: DIFFUSE LARGE B-CELL LYMPHOMA STAGE IV
     Dosage: UNK  (CYCLE 1)
     Route: 065
  21. DOXORUBICIN [Suspect]
     Active Substance: DOXORUBICIN
     Dosage: UNK  (CYCLE 4)
     Route: 065
  22. RITUXIMAB. [Suspect]
     Active Substance: RITUXIMAB
     Indication: DIFFUSE LARGE B-CELL LYMPHOMA STAGE IV
     Dosage: UNK  (CYCLE 1)
     Route: 065
  23. VINCRISTINE [Suspect]
     Active Substance: VINCRISTINE
     Dosage: UNK  (CYCLE 2)
     Route: 065
  24. VINCRISTINE [Suspect]
     Active Substance: VINCRISTINE
     Dosage: UNK  (CYCLE 5)
     Route: 065
  25. ETOPOSIDE. [Suspect]
     Active Substance: ETOPOSIDE
     Dosage: UNK  (CYCLE 2)
     Route: 065
  26. ETOPOSIDE. [Suspect]
     Active Substance: ETOPOSIDE
     Dosage: UNK  (CYCLE 4)
     Route: 065
  27. RITUXIMAB. [Suspect]
     Active Substance: RITUXIMAB
     Dosage: UNK  (CYCLE 5)
     Route: 065
  28. VALGANCICLOVIR. [Concomitant]
     Active Substance: VALGANCICLOVIR
     Indication: CYTOMEGALOVIRUS VIRAEMIA
  29. RITUXIMAB. [Suspect]
     Active Substance: RITUXIMAB
     Dosage: UNK  (CYCLE 4)
     Route: 065
  30. VINCRISTINE [Suspect]
     Active Substance: VINCRISTINE
     Indication: DIFFUSE LARGE B-CELL LYMPHOMA STAGE IV
     Dosage: UNK  (CYCLE 1)
     Route: 065
  31. ETOPOSIDE. [Suspect]
     Active Substance: ETOPOSIDE
     Dosage: UNK, (CYCLE 3, 20 PERCENT REDUCED DOSE)
     Route: 065
  32. CYCLOPHOSPHAMIDE. [Suspect]
     Active Substance: CYCLOPHOSPHAMIDE
     Dosage: UNK  (CYCLE 4)
     Route: 065
  33. DOXORUBICIN [Suspect]
     Active Substance: DOXORUBICIN
     Dosage: UNK  (CYCLE 5)
     Route: 065
  34. PREDNISONE. [Suspect]
     Active Substance: PREDNISONE
     Dosage: UNK  (CYCLE 5)
     Route: 065
  35. RITUXIMAB. [Suspect]
     Active Substance: RITUXIMAB
     Dosage: UNK, (CYCLE 3, 20 PERCENT REDUCED DOSE)
     Route: 065

REACTIONS (4)
  - Bacteraemia [Unknown]
  - Viral haemorrhagic cystitis [Recovered/Resolved]
  - Febrile neutropenia [Unknown]
  - Septic shock [Unknown]
